FAERS Safety Report 8448529-3 (Version None)
Quarter: 2012Q2

REPORT INFORMATION
  Report Type: 
  Country: None (occurrence: None)
  Receive Date: 20120619
  Receipt Date: 20120604
  Transmission Date: 20120825
  Serious: Yes (Other)
  Sender: FDA-Public Use
  Company Number: KR-ROCHE-1077888

PATIENT
  Age: 22 Year
  Sex: Female

DRUGS (1)
  1. BEVACIZUMAB [Suspect]
     Indication: MACULAR OEDEMA
     Dosage: 0.05ML/1.25 MG
     Route: 050

REACTIONS (1)
  - RETINAL ARTERY OCCLUSION [None]
